FAERS Safety Report 9397081 (Version 2)
Quarter: 2013Q3

REPORT INFORMATION
  Report Type: Spontaneous
  Country: US (occurrence: US)
  Receive Date: 20130712
  Receipt Date: 20130801
  Transmission Date: 20140515
  Serious: Yes (Hospitalization, Other)
  Sender: FDA-Public Use
  Company Number: US-PFIZER INC-2013202545

PATIENT
  Age: 31 Year
  Sex: Male

DRUGS (1)
  1. CHANTIX [Suspect]
     Dosage: STARTER PACK
     Dates: start: 20100420, end: 20100511

REACTIONS (2)
  - Convulsion [Unknown]
  - Mental disorder [Unknown]
